FAERS Safety Report 25004079 (Version 1)
Quarter: 2025Q1

REPORT INFORMATION
  Report Type: Spontaneous
  Country: US (occurrence: None)
  Receive Date: 20250222
  Receipt Date: 20250222
  Transmission Date: 20250408
  Serious: No
  Sender: FDA-CTU
  Company Number: None

PATIENT
  Age: 58 Year
  Sex: Male

DRUGS (1)
  1. EPCLUSA [Suspect]
     Active Substance: SOFOSBUVIR\VELPATASVIR
     Dosage: OTHER QUANTITY : 400/100MG;?FREQUENCY : DAILY;?
     Route: 048
     Dates: start: 202502

REACTIONS (3)
  - Hypoaesthesia [None]
  - Feeling cold [None]
  - Headache [None]

NARRATIVE: CASE EVENT DATE: 20250220
